FAERS Safety Report 8019616-9 (Version None)
Quarter: 2012Q1

REPORT INFORMATION
  Report Type: 
  Country: None (occurrence: None)
  Receive Date: 20120103
  Receipt Date: 20111221
  Transmission Date: 20120608
  Serious: Yes (Hospitalization)
  Sender: FDA-Public Use
  Company Number: US-GLAXOSMITHKLINE-A0922110A

PATIENT
  Age: 55 Year
  Sex: Male

DRUGS (2)
  1. AVANDIA [Suspect]
     Indication: DIABETES MELLITUS
     Dosage: 8MG PER DAY
     Route: 048
     Dates: start: 20000101, end: 20071101
  2. AVANDAMET [Suspect]
     Dosage: 1TAB TWICE PER DAY
     Route: 048

REACTIONS (4)
  - CATHETER PLACEMENT [None]
  - CORONARY ARTERY BYPASS [None]
  - STENT PLACEMENT [None]
  - CORONARY ARTERY DISEASE [None]
